FAERS Safety Report 19053719 (Version 1)
Quarter: 2021Q1

REPORT INFORMATION
  Report Type: Spontaneous
  Country: CA (occurrence: CA)
  Receive Date: 20210324
  Receipt Date: 20210324
  Transmission Date: 20210420
  Serious: Yes (Other)
  Sender: FDA-Public Use
  Company Number: CA-JNJFOC-20210338960

PATIENT
  Age: 54 Year
  Sex: Male
  Weight: 75 kg

DRUGS (2)
  1. IRON [Concomitant]
     Active Substance: IRON
  2. INFLIXIMAB, RECOMBINANT [Suspect]
     Active Substance: INFLIXIMAB
     Indication: CROHN^S DISEASE
     Route: 042

REACTIONS (5)
  - Inappropriate schedule of product administration [Unknown]
  - Condition aggravated [Unknown]
  - Blood pressure increased [Unknown]
  - Intentional product use issue [Unknown]
  - Off label use [Unknown]
